FAERS Safety Report 4287920-6 (Version None)
Quarter: 2004Q1

REPORT INFORMATION
  Report Type: 
  Country: None (occurrence: None)
  Receive Date: 20040205
  Receipt Date: 20040126
  Transmission Date: 20041129
  Serious: Yes (Death)
  Sender: FDA-Public Use
  Company Number: UK064839

PATIENT
  Sex: Female

DRUGS (3)
  1. NEULASTA [Suspect]
     Indication: CHEMOTHERAPY
  2. CISPLATIN [Concomitant]
  3. PACLITAXEL [Concomitant]

REACTIONS (1)
  - FEBRILE NEUTROPENIA [None]
